FAERS Safety Report 9424163 (Version 2)
Quarter: 2013Q3

REPORT INFORMATION
  Report Type: Report from Study
  Country: DE (occurrence: DE)
  Receive Date: 20130729
  Receipt Date: 20130916
  Transmission Date: 20140515
  Serious: Yes (Hospitalization)
  Sender: FDA-Public Use
  Company Number: PHHY2013DE079468

PATIENT
  Sex: Female

DRUGS (9)
  1. AMN107 [Suspect]
     Indication: CHRONIC MYELOID LEUKAEMIA
     Dosage: 600 MG, DAILY
     Route: 048
     Dates: start: 20120905
  2. METOHEXAL [Concomitant]
  3. AMLODIPINE [Concomitant]
  4. METFORMIN [Concomitant]
  5. SIMVASTATIN [Concomitant]
  6. ASS [Concomitant]
  7. PANTOZOL [Concomitant]
  8. VIGANTOLETTEN [Concomitant]
  9. VENOFER [Concomitant]
     Dates: start: 20130605

REACTIONS (1)
  - Wrist fracture [Recovered/Resolved]
